FAERS Safety Report 20216431 (Version 1)
Quarter: 2021Q4

REPORT INFORMATION
  Report Type: Spontaneous
  Country: US (occurrence: US)
  Receive Date: 20211222
  Receipt Date: 20211222
  Transmission Date: 20220303
  Serious: Yes (Other)
  Sender: FDA-Public Use
  Company Number: US-Hikma Pharmaceuticals USA Inc.-US-H14001-21-05333

PATIENT
  Age: 17 Year
  Sex: Male

DRUGS (15)
  1. RISPERIDONE [Suspect]
     Active Substance: RISPERIDONE
     Indication: Autism spectrum disorder
     Dosage: UNKNOWN
     Route: 065
  2. DEXMEDETOMIDINE [Suspect]
     Active Substance: DEXMEDETOMIDINE
     Indication: Sedation
     Dosage: UNKNOWN
     Route: 042
  3. LURASIDONE [Suspect]
     Active Substance: LURASIDONE
     Indication: Autism spectrum disorder
     Dosage: UNKNOWN
     Route: 065
  4. ARIPIPRAZOLE [Suspect]
     Active Substance: ARIPIPRAZOLE
     Indication: Autism spectrum disorder
     Dosage: UBNKNOWN
     Route: 065
  5. OLANZAPINE [Suspect]
     Active Substance: OLANZAPINE
     Indication: Autism spectrum disorder
     Dosage: UNKNOWN
     Route: 065
  6. MIDAZOLAM [Concomitant]
     Active Substance: MIDAZOLAM
     Indication: Agitation
     Dosage: 12 MG/H
     Route: 065
  7. FENTANYL [Concomitant]
     Active Substance: FENTANYL
     Indication: Sedation
     Dosage: UNKNOWN
     Route: 065
  8. VECURONIUM [Concomitant]
     Active Substance: VECURONIUM BROMIDE
     Indication: Sedation
     Dosage: UNKNOWN
     Route: 065
  9. LORAZEPAM [Concomitant]
     Active Substance: LORAZEPAM
     Indication: Catatonia
     Route: 048
  10. LORAZEPAM [Concomitant]
     Active Substance: LORAZEPAM
     Route: 042
  11. METHYLPHENIDATE [Concomitant]
     Active Substance: METHYLPHENIDATE
     Indication: Catatonia
     Dosage: 30 MG EVERY MORNING AND 20 MG EVERY NOON
     Route: 048
  12. CLONIDINE [Concomitant]
     Active Substance: CLONIDINE
     Indication: Catatonia
     Dosage: 0.2 MG  BEFORE BED
     Route: 048
  13. HALOPERIDOL [Concomitant]
     Active Substance: HALOPERIDOL
     Indication: Catatonia
     Route: 042
  14. KETAMINE [Concomitant]
     Active Substance: KETAMINE
     Indication: Catatonia
     Dosage: UNKNOWN
     Route: 030
  15. KETAMINE [Concomitant]
     Active Substance: KETAMINE
     Route: 042

REACTIONS (3)
  - Catatonia [Recovered/Resolved]
  - Condition aggravated [Recovered/Resolved]
  - Bradycardia [Unknown]
